FAERS Safety Report 4349885-8 (Version None)
Quarter: 2004Q2

REPORT INFORMATION
  Report Type: 
  Country: None (occurrence: None)
  Receive Date: 20040426
  Receipt Date: 20040414
  Transmission Date: 20050107
  Serious: Yes (Disabling, Other)
  Sender: FDA-Public Use
  Company Number: USA-2004-0014638

PATIENT
  Age: 25 Year
  Sex: Female

DRUGS (3)
  1. CEFDITOREN PIVOXIL (SIMILAR  TO NDA-21-222)(CEFDITOREN PIVOXIL) OTHER [Suspect]
     Indication: BRONCHITIS ACUTE
     Dosage: 300 MG, DAILY, ORAL
     Route: 048
     Dates: start: 20040330, end: 20040402
  2. LOXONIN (LOXOPROFEN SODIUM) [Concomitant]
  3. SELBEX (TEPRENONE) [Concomitant]

REACTIONS (6)
  - FATIGUE [None]
  - MALAISE [None]
  - PLATELET COUNT DECREASED [None]
  - PYREXIA [None]
  - RASH [None]
  - WHITE BLOOD CELL COUNT DECREASED [None]
